FAERS Safety Report 21769982 (Version 1)
Quarter: 2022Q4

REPORT INFORMATION
  Report Type: Spontaneous
  Country: FR (occurrence: FR)
  Receive Date: 20221223
  Receipt Date: 20221223
  Transmission Date: 20230113
  Serious: Yes (Other)
  Sender: FDA-Public Use
  Company Number: None

PATIENT
  Age: 70 Year
  Sex: Female
  Weight: 71 kg

DRUGS (1)
  1. LETROZOLE [Suspect]
     Active Substance: LETROZOLE
     Indication: Breast cancer
     Dosage: FREQUENCY TIME : 1 DAY, UNIT DOSE: 2.5 MG, FREQUENCY TIME : 1 DAY, DURATION : 1 MONTH
     Route: 065
     Dates: start: 202208, end: 20220912

REACTIONS (1)
  - Rash papular [Recovered/Resolved]

NARRATIVE: CASE EVENT DATE: 20220801
